FAERS Safety Report 8382583-2 (Version None)
Quarter: 2012Q2

REPORT INFORMATION
  Report Type: 
  Country: None (occurrence: None)
  Receive Date: 20120524
  Receipt Date: 20120522
  Transmission Date: 20120825
  Serious: Yes (Life-Threatening, Other)
  Sender: FDA-Public Use
  Company Number: DE-BAYER-2012-049969

PATIENT
  Sex: Female

DRUGS (1)
  1. GADAVIST [Suspect]
     Indication: X-RAY WITH CONTRAST
     Dosage: UNK
     Dates: start: 20120515, end: 20120515

REACTIONS (4)
  - NAUSEA [None]
  - MALAISE [None]
  - COMA [None]
  - PAIN [None]
